FAERS Safety Report 7404459-7 (Version None)
Quarter: 2011Q2

REPORT INFORMATION
  Report Type: 
  Country: None (occurrence: None)
  Receive Date: 20110408
  Receipt Date: 20110328
  Transmission Date: 20111010
  Serious: Yes (Other)
  Sender: FDA-Public Use
  Company Number: FI-GENENTECH-312048

PATIENT
  Sex: Female
  Weight: 60 kg

DRUGS (11)
  1. TOCILIZUMAB [Suspect]
     Dosage: 480 MG, 1/MONTH
     Route: 042
     Dates: start: 20100525
  2. TOCILIZUMAB [Suspect]
     Dosage: 8 MG/KG, 1/MONTH
     Route: 042
     Dates: start: 20100915, end: 20101216
  3. TOCILIZUMAB [Suspect]
     Dosage: 8 MG/KG, Q4W
     Route: 042
  4. TOCILIZUMAB [Suspect]
     Dosage: 4 MG/KG, Q4W
     Route: 042
  5. TOCILIZUMAB [Suspect]
     Indication: RHEUMATOID ARTHRITIS
     Dosage: 8 MG/KG, 1/MONTH
     Route: 042
     Dates: start: 20100126
  6. RITUXIMAB [Suspect]
     Indication: RHEUMATOID ARTHRITIS
     Dosage: UNK
     Route: 042
     Dates: end: 20090201
  7. HYDROXYCHLOROQUINE SULFATE [Concomitant]
     Indication: RHEUMATOID ARTHRITIS
     Dosage: UNK
  8. TOCILIZUMAB [Suspect]
     Dosage: 480 MG, 1/MONTH
     Route: 042
     Dates: start: 20100623
  9. PREDNISOLONE [Concomitant]
     Indication: RHEUMATOID ARTHRITIS
     Dosage: 5 MG, 1/WEEK
     Route: 048
  10. TOCILIZUMAB [Suspect]
     Dosage: 480 MG, 1/MONTH
     Route: 042
     Dates: start: 20100723, end: 20100820
  11. METHOTREXATE [Concomitant]
     Indication: RHEUMATOID ARTHRITIS
     Dosage: 5 MG, 1/WEEK
     Route: 048
     Dates: end: 20101216

REACTIONS (5)
  - DRUG INEFFECTIVE [None]
  - ANAEMIA [None]
  - MYELODYSPLASTIC SYNDROME [None]
  - NEUTROPENIA [None]
  - THROMBOCYTOPENIA [None]
